FAERS Safety Report 16479373 (Version 2)
Quarter: 2019Q3

REPORT INFORMATION
  Report Type: Spontaneous
  Country: US (occurrence: US)
  Receive Date: 20190626
  Receipt Date: 20190711
  Transmission Date: 20191004
  Serious: Yes (Death, Other)
  Sender: FDA-Public Use
  Company Number: US-CATALYST PHARMACEUTICALS, INC-2019CAT00173

PATIENT
  Age: 66 Year
  Sex: Male
  Weight: 86.17 kg

DRUGS (8)
  1. FIRDAPSE [Suspect]
     Active Substance: AMIFAMPRIDINE
     Indication: NEUROLOGICAL DECOMPENSATION
  2. FIRDAPSE [Suspect]
     Active Substance: AMIFAMPRIDINE
     Indication: PARANEOPLASTIC SYNDROME
     Dosage: UNK, 4X/DAY
     Route: 048
     Dates: start: 20190517, end: 20190522
  3. PROSCAR [Concomitant]
     Active Substance: FINASTERIDE
  4. FIRDAPSE [Suspect]
     Active Substance: AMIFAMPRIDINE
     Indication: MYASTHENIC SYNDROME
  5. DEXILANT [Concomitant]
     Active Substance: DEXLANSOPRAZOLE
     Dosage: 60 MG, AS NEEDED
  6. DEXAMETHASONE. [Concomitant]
     Active Substance: DEXAMETHASONE
  7. HYTRIN [Concomitant]
     Active Substance: TERAZOSIN HYDROCHLORIDE
  8. AMITIZA [Concomitant]
     Active Substance: LUBIPROSTONE

REACTIONS (4)
  - Paraneoplastic myelopathy [Fatal]
  - Pseudomonal bacteraemia [Fatal]
  - Respiratory failure [Fatal]
  - Drug ineffective [Recovered/Resolved]

NARRATIVE: CASE EVENT DATE: 201905
